FAERS Safety Report 6717644-4 (Version None)
Quarter: 2010Q2

REPORT INFORMATION
  Report Type: 
  Country: None (occurrence: None)
  Receive Date: 20100510
  Receipt Date: 20100325
  Transmission Date: 20101027
  Serious: No
  Sender: FDA-Public Use
  Company Number: A0850229A

PATIENT
  Age: 67 Year
  Sex: Female

DRUGS (4)
  1. ALTABAX [Suspect]
     Indication: RASH
     Dosage: 1APP SINGLE DOSE
     Route: 061
     Dates: start: 20100314, end: 20100315
  2. SYNTHROID [Concomitant]
  3. METFORMIN HYDROCHLORIDE [Concomitant]
  4. LISINOPRIL [Concomitant]

REACTIONS (1)
  - LIP BLISTER [None]
